FAERS Safety Report 14632478 (Version 1)
Quarter: 2018Q1

REPORT INFORMATION
  Report Type: Spontaneous
  Country: US (occurrence: US)
  Receive Date: 20180313
  Receipt Date: 20180313
  Transmission Date: 20180509
  Serious: No
  Sender: FDA-Public Use
  Company Number: US-TEVA-2018-US-869735

PATIENT
  Age: 38 Year
  Sex: Male

DRUGS (2)
  1. QUININE SULFATE. [Suspect]
     Active Substance: QUININE SULFATE
     Indication: PLASMODIUM FALCIPARUM INFECTION
     Route: 065
  2. DOXYCYCLINE. [Concomitant]
     Active Substance: DOXYCYCLINE
     Indication: PLASMODIUM FALCIPARUM INFECTION
     Route: 065

REACTIONS (1)
  - Hypoglycaemia [Recovered/Resolved]
